FAERS Safety Report 7607969-2 (Version None)
Quarter: 2011Q3

REPORT INFORMATION
  Report Type: 
  Country: None (occurrence: None)
  Receive Date: 20110714
  Receipt Date: 20110712
  Transmission Date: 20111222
  Serious: No
  Sender: FDA-Public Use
  Company Number: US-PFIZER INC-2011158476

PATIENT
  Sex: Male
  Weight: 82 kg

DRUGS (14)
  1. ENALAPRIL [Concomitant]
     Indication: CARDIAC DISORDER
     Dosage: 20 MG, DAILY
  2. THIAMINE [Concomitant]
     Indication: CARDIAC DISORDER
     Dosage: 100 MG, UNK
  3. DIGOXIN [Concomitant]
     Dosage: 25 MG, UNK
  4. VERAPAMIL [Concomitant]
     Dosage: 80 MG, UNK
  5. CHANTIX [Suspect]
     Dosage: 0.5 MG, 2X/DAY
     Route: 048
     Dates: start: 20110704, end: 20110704
  6. SIMVASTATIN [Concomitant]
     Indication: DIABETES MELLITUS
     Dosage: 40 MG, UNK
  7. PLAVIX [Concomitant]
     Indication: CARDIAC DISORDER
     Dosage: 75 MG, DAILY
  8. CHANTIX [Suspect]
     Indication: SMOKING CESSATION THERAPY
     Dosage: 0.5 MG, DAILY
     Route: 048
     Dates: start: 20110701, end: 20110703
  9. CHANTIX [Suspect]
     Dosage: UNK
     Route: 048
     Dates: start: 20110711, end: 20110711
  10. METFORMIN [Concomitant]
     Dosage: 500 MG, UNK
  11. ACETYLSALICYLIC ACID [Concomitant]
     Indication: CARDIAC DISORDER
     Dosage: 81 MG, DAILY
  12. ALLOPURINOL [Concomitant]
     Indication: GOUT
     Dosage: 100 MG, UNK
  13. TRIAMTERENE AND HYDROCHLOROTHIAZIDE [Concomitant]
     Indication: ANTICOAGULANT THERAPY
     Dosage: 75/50MG  UNK
  14. CARDIZEM [Concomitant]
     Dosage: 60 MG, UNK

REACTIONS (5)
  - MALAISE [None]
  - NAUSEA [None]
  - DECREASED APPETITE [None]
  - VOMITING [None]
  - CONSTIPATION [None]
